FAERS Safety Report 5348885-9 (Version None)
Quarter: 2007Q2

REPORT INFORMATION
  Report Type: 
  Country: None (occurrence: None)
  Receive Date: 20070607
  Receipt Date: 20070524
  Transmission Date: 20071010
  Serious: Yes (Other)
  Sender: FDA-Public Use
  Company Number: PHBS2007GB08666

PATIENT
  Sex: Male

DRUGS (5)
  1. STALEVO 100 [Suspect]
     Route: 065
  2. ARICEPT [Concomitant]
     Route: 065
  3. ASPIRIN [Concomitant]
     Route: 065
  4. VENLAFAXINE HCL [Concomitant]
     Route: 065
  5. PRAXILENE [Concomitant]
     Route: 065

REACTIONS (6)
  - AGITATION [None]
  - CIRCULATORY COLLAPSE [None]
  - GENERAL PHYSICAL HEALTH DETERIORATION [None]
  - HALLUCINATION [None]
  - SHOCK [None]
  - TREMOR [None]
